FAERS Safety Report 6598564-5 (Version None)
Quarter: 2010Q1

REPORT INFORMATION
  Report Type: 
  Country: None (occurrence: None)
  Receive Date: 20100224
  Receipt Date: 20100215
  Transmission Date: 20100710
  Serious: Yes (Hospitalization)
  Sender: FDA-Public Use
  Company Number: US-RANBAXY-2010US-31198

PATIENT

DRUGS (1)
  1. ISOPTIN SR [Suspect]
     Indication: HYPERTENSION
     Dosage: 240 MG, QD
     Route: 048

REACTIONS (2)
  - DRUG DISPENSING ERROR [None]
  - OVERDOSE [None]
